FAERS Safety Report 6913212-X (Version None)
Quarter: 2010Q3

REPORT INFORMATION
  Report Type: 
  Country: None (occurrence: None)
  Receive Date: 20100808
  Receipt Date: 20100730
  Transmission Date: 20110219
  Serious: Yes (Other)
  Sender: FDA-Public Use
  Company Number: AT-BAYER-201034632GPV

PATIENT
  Age: 36 Year
  Sex: Female

DRUGS (1)
  1. YASMIN [Suspect]
     Indication: CONTRACEPTION
     Dates: start: 20040601, end: 20100601

REACTIONS (1)
  - CEREBROVASCULAR ACCIDENT [None]
